FAERS Safety Report 7832910-7 (Version None)
Quarter: 2011Q4

REPORT INFORMATION
  Report Type: 
  Country: None (occurrence: None)
  Receive Date: 20111024
  Receipt Date: 20111020
  Transmission Date: 20120403
  Serious: Yes (Hospitalization, Other)
  Sender: FDA-Public Use
  Company Number: SE-PFIZER INC-2011243119

PATIENT
  Age: 46 Year
  Sex: Female

DRUGS (4)
  1. BRICANYL [Concomitant]
     Indication: ASTHMA
     Dosage: 0.25 UG PER DOSE
  2. FORMOTEROL FUMARATE [Concomitant]
     Indication: ASTHMA
     Dosage: TWICE DAILY
  3. VARENICLINE TARTRATE [Suspect]
     Dosage: UNK
     Dates: end: 20110101
  4. PULMICORT [Concomitant]
     Indication: ASTHMA
     Dosage: UNK

REACTIONS (3)
  - HYPERSENSITIVITY [None]
  - RASH ERYTHEMATOUS [None]
  - HAEMORRHAGE [None]
